FAERS Safety Report 7322800-0 (Version None)
Quarter: 2011Q1

REPORT INFORMATION
  Report Type: 
  Country: None (occurrence: None)
  Receive Date: 20110301
  Receipt Date: 20110215
  Transmission Date: 20110831
  Serious: Yes (Death, Hospitalization)
  Sender: FDA-Public Use
  Company Number: GB-CELGENEUS-167-21880-10032285

PATIENT
  Sex: Male

DRUGS (4)
  1. REVLIMID [Suspect]
     Dosage: 10 MILLIGRAM
     Route: 048
     Dates: start: 20100312, end: 20100319
  2. ETOPOSIDE [Suspect]
     Dosage: 198 MILLIGRAM
     Route: 051
     Dates: start: 20100320, end: 20100321
  3. CYTARABINE [Suspect]
     Dosage: 396 MILLIGRAM
     Route: 051
     Dates: start: 20100320, end: 20100321
  4. DAUNORUBICIN [Suspect]
     Dosage: 99 MILLIGRAM
     Route: 051
     Dates: start: 20100320, end: 20100321

REACTIONS (2)
  - CAECITIS [None]
  - ACUTE MYELOID LEUKAEMIA [None]
